FAERS Safety Report 7386048-6 (Version None)
Quarter: 2011Q1

REPORT INFORMATION
  Report Type: 
  Country: None (occurrence: None)
  Receive Date: 20110331
  Receipt Date: 20110321
  Transmission Date: 20110831
  Serious: Yes (Hospitalization)
  Sender: FDA-Public Use
  Company Number: US-JNJFOC-20110309175

PATIENT
  Sex: Female
  Weight: 56.7 kg

DRUGS (4)
  1. DURAGESIC-50 [Suspect]
     Indication: FIBROMYALGIA
     Route: 062
  2. DURAGESIC-50 [Suspect]
     Indication: LYME DISEASE
     Route: 062
  3. AMBIEN [Concomitant]
     Indication: SLEEP DISORDER
     Route: 048
  4. KLONOPIN [Concomitant]
     Route: 048

REACTIONS (6)
  - INAPPROPRIATE SCHEDULE OF DRUG ADMINISTRATION [None]
  - HEART RATE IRREGULAR [None]
  - FOREIGN BODY [None]
  - WITHDRAWAL SYNDROME [None]
  - ATRIAL FIBRILLATION [None]
  - HYPOPHAGIA [None]
